FAERS Safety Report 5964371-7 (Version None)
Quarter: 2008Q4

REPORT INFORMATION
  Report Type: 
  Country: None (occurrence: None)
  Receive Date: 20081124
  Receipt Date: 20081118
  Transmission Date: 20090506
  Serious: Yes (Other)
  Sender: FDA-Public Use
  Company Number: KR-PFIZER INC-2008094622

PATIENT
  Sex: Male

DRUGS (1)
  1. LIPITOR [Suspect]
     Route: 048
     Dates: start: 20080912, end: 20081101

REACTIONS (7)
  - BLOOD CHOLESTEROL INCREASED [None]
  - HAEMATOSPERMIA [None]
  - HAEMATURIA [None]
  - MYALGIA [None]
  - PAIN IN EXTREMITY [None]
  - RENAL PAIN [None]
  - TOOTHACHE [None]
